FAERS Safety Report 21962723 (Version 2)
Quarter: 2023Q1

REPORT INFORMATION
  Report Type: Spontaneous
  Country: CN (occurrence: CN)
  Receive Date: 20230207
  Receipt Date: 20230217
  Transmission Date: 20230417
  Serious: Yes (Other)
  Sender: FDA-Public Use
  Company Number: CN-ABBVIE-4293223

PATIENT

DRUGS (4)
  1. VENCLEXTA [Suspect]
     Active Substance: VENETOCLAX
     Indication: Acute myeloid leukaemia
     Dosage: DAY 1
     Route: 048
  2. VENCLEXTA [Suspect]
     Active Substance: VENETOCLAX
     Indication: Acute myeloid leukaemia
     Dosage: DAY 2
     Route: 048
  3. VENCLEXTA [Suspect]
     Active Substance: VENETOCLAX
     Indication: Acute myeloid leukaemia
     Dosage: DAY 3 TO 28
     Route: 048
  4. AZACITIDINE [Suspect]
     Active Substance: AZACITIDINE
     Indication: Acute myeloid leukaemia
     Dosage: DAY 1 TO 7 AND 28 DAYS AS A COURSE OF TREATMENT
     Route: 065

REACTIONS (22)
  - Gastrointestinal haemorrhage [Unknown]
  - Infection [Unknown]
  - Vomiting [Unknown]
  - Urinary tract infection [Unknown]
  - Thrombocytopenia [Unknown]
  - Pneumonia [Unknown]
  - Anal infection [Unknown]
  - Thrombosis [Unknown]
  - Anaemia [Unknown]
  - Haematological infection [Unknown]
  - Febrile neutropenia [Unknown]
  - Nausea [Unknown]
  - Tumour lysis syndrome [Unknown]
  - Gastrointestinal infection [Unknown]
  - Diarrhoea [Unknown]
  - Epistaxis [Unknown]
  - Haemorrhage urinary tract [Unknown]
  - Cerebral haemorrhage [Unknown]
  - Pulmonary haemorrhage [Unknown]
  - Abdominal infection [Unknown]
  - Hepatic function abnormal [Unknown]
  - Constipation [Unknown]
